FAERS Safety Report 4680688-0 (Version None)
Quarter: 2005Q2

REPORT INFORMATION
  Report Type: 
  Country: None (occurrence: None)
  Receive Date: 20050603
  Receipt Date: 20050413
  Transmission Date: 20051028
  Serious: Yes (Death)
  Sender: FDA-Public Use
  Company Number: 2005AP02267

PATIENT
  Age: 23910 Day
  Sex: Male
  Weight: 38.5 kg

DRUGS (9)
  1. IRESSA [Suspect]
     Indication: LUNG ADENOCARCINOMA
     Route: 048
     Dates: start: 20030618, end: 20030717
  2. TAKEPRON [Concomitant]
     Indication: REFLUX OESOPHAGITIS
     Route: 048
     Dates: start: 20020723, end: 20030825
  3. MAGNESIUM OXIDE [Concomitant]
     Indication: CONSTIPATION
     Route: 048
     Dates: start: 20030422, end: 20030825
  4. MUCOSTA [Concomitant]
     Indication: GASTRITIS
     Route: 048
     Dates: start: 20030619, end: 20030825
  5. CARBOPLATIN [Concomitant]
     Dosage: 10 CYCLES
     Dates: start: 20020801, end: 20030501
  6. GEMCITABINE [Concomitant]
     Dosage: 10 CYCLES
     Dates: start: 20020801, end: 20030501
  7. CISPLATIN [Concomitant]
     Dosage: 1 CYCLE
     Dates: start: 20030501, end: 20030601
  8. MITOMYCIN [Concomitant]
     Dosage: 1 CYCLE
     Dates: start: 20030501, end: 20030601
  9. VINORELBINE TARTRATE [Concomitant]
     Dosage: 1 CYCLE
     Dates: start: 20030501, end: 20030601

REACTIONS (1)
  - INTERSTITIAL LUNG DISEASE [None]
